FAERS Safety Report 14732063 (Version 2)
Quarter: 2018Q2

REPORT INFORMATION
  Report Type: Report from Study
  Country: US (occurrence: US)
  Receive Date: 20180408
  Receipt Date: 20180424
  Transmission Date: 20180711
  Serious: Yes (Hospitalization, Other)
  Sender: FDA-Public Use
  Company Number: US-AMGEN-USASL2018046194

PATIENT
  Age: 69 Year
  Sex: Female

DRUGS (3)
  1. ENBREL [Suspect]
     Active Substance: ETANERCEPT
     Indication: RHEUMATOID ARTHRITIS
     Dosage: 50 MG, 2 TIMES/WK
     Route: 065
  2. ENBREL [Suspect]
     Active Substance: ETANERCEPT
     Dosage: 50 MG, QWK
     Route: 065
     Dates: start: 2002
  3. INSULIN [Concomitant]
     Active Substance: INSULIN NOS
     Indication: DIABETES MELLITUS
     Dosage: UNK

REACTIONS (13)
  - Contusion [Unknown]
  - Wrong technique in product usage process [Unknown]
  - Dental care [Unknown]
  - Off label use [Unknown]
  - Loss of consciousness [Unknown]
  - Cervical vertebral fracture [Unknown]
  - Head injury [Unknown]
  - Arthralgia [Unknown]
  - Fall [Unknown]
  - Weight decreased [Unknown]
  - Upper limb fracture [Unknown]
  - Infection [Unknown]
  - Injection site pain [Unknown]

NARRATIVE: CASE EVENT DATE: 2015
